FAERS Safety Report 4462476-3 (Version None)
Quarter: 2004Q3

REPORT INFORMATION
  Report Type: 
  Country: None (occurrence: None)
  Receive Date: 20040928
  Receipt Date: 20040914
  Transmission Date: 20050211
  Serious: Yes (Life-Threatening, Other)
  Sender: FDA-Public Use
  Company Number: 2004066341

PATIENT
  Age: 33 Year
  Sex: Male

DRUGS (4)
  1. UNASYN [Suspect]
     Indication: LOWER RESPIRATORY TRACT INFECTION
     Dosage: 3 GRAM (1.5 GRAM, 2 IN 1 D), INTRAVENOUS
     Route: 042
     Dates: start: 20040908, end: 20040908
  2. ACETAMINOPHEN [Concomitant]
  3. ASCORBIC ACID [Concomitant]
  4. LOTUSSIN (DEXTROMETHORPHAN HYDROBROMIDE, DIPHENHYDRAMINE HYDROCHLORIDE [Concomitant]

REACTIONS (1)
  - ANAPHYLACTIC SHOCK [None]
